FAERS Safety Report 8817761 (Version 1)
Quarter: 2012Q4

REPORT INFORMATION
  Report Type: Report from Study
  Country: DE (occurrence: DE)
  Receive Date: 20121001
  Receipt Date: 20121001
  Transmission Date: 20130627
  Serious: Yes (Death, Hospitalization)
  Sender: FDA-Public Use
  Company Number: DE-PFIZER INC-DE-WYE-G05998610

PATIENT
  Age: 60 Year
  Sex: Female
  Weight: 55 kg

DRUGS (11)
  1. TAZOBAC EF [Suspect]
     Dosage: 4.5 g, 2x/day
     Route: 042
     Dates: start: 20100225, end: 20100311
  2. KETAMINE [Suspect]
     Dosage: 10-200 mg daily
     Route: 042
     Dates: start: 20100224, end: 20100225
  3. KETAMINE [Suspect]
     Dosage: 10-200 mg daily
     Route: 042
     Dates: start: 20100302, end: 20100311
  4. CLONIDINE [Suspect]
     Dosage: 0.3 - 1.7 mg daily
     Route: 042
     Dates: start: 20100228, end: 20100315
  5. FUROSEMIDE [Suspect]
     Dosage: 40-400 mg daily
     Route: 042
     Dates: start: 20100224, end: 20100312
  6. SANDOSTATIN [Suspect]
     Dosage: 100 ug, 3x/day
     Route: 058
     Dates: start: 20100303, end: 20100310
  7. HALOPERIDOL [Suspect]
     Dosage: 0.5 mg, 3x/day
     Route: 042
     Dates: start: 20100303, end: 20100306
  8. RAMIPRIL [Suspect]
     Dosage: 2.5-10 mg daily
     Route: 048
     Dates: start: 20100301, end: 20100304
  9. RAMIPRIL [Suspect]
     Dosage: 2.5-10 mg daily
     Route: 048
     Dates: start: 20100307, end: 20100308
  10. FENOTEROL HYDROBROMIDE [Suspect]
     Dosage: nearly 1 mg daily
     Route: 042
     Dates: start: 20100303, end: 20100315
  11. IOBITRIDOL [Suspect]
     Dosage: 100 mL
     Route: 042
     Dates: start: 20100305, end: 20100305

REACTIONS (5)
  - Agranulocytosis [Fatal]
  - Respiratory tract infection [Fatal]
  - Condition aggravated [Fatal]
  - Neutrophil count decreased [Unknown]
  - White blood cell count decreased [Unknown]
